FAERS Safety Report 18701892 (Version 1)
Quarter: 2021Q1

REPORT INFORMATION
  Report Type: Spontaneous
  Country: US (occurrence: US)
  Receive Date: 20210105
  Receipt Date: 20210105
  Transmission Date: 20210419
  Serious: Yes (Death)
  Sender: FDA-Public Use
  Company Number: None

PATIENT
  Age: 53 Year
  Sex: Male

DRUGS (3)
  1. TYLENOL [Concomitant]
     Active Substance: ACETAMINOPHEN
  2. TACROLIMUS. [Suspect]
     Active Substance: TACROLIMUS
     Indication: TRANSPLANT
     Dosage: ?          OTHER FREQUENCY:3MG QAM + 3.5MG QP;?
     Route: 048
     Dates: start: 20200724
  3. RITUXAN [Concomitant]
     Active Substance: RITUXIMAB

REACTIONS (1)
  - Death [None]
